FAERS Safety Report 21201082 (Version 1)
Quarter: 2022Q3

REPORT INFORMATION
  Report Type: Spontaneous
  Country: US (occurrence: None)
  Receive Date: 20220810
  Receipt Date: 20220810
  Transmission Date: 20221027
  Serious: Yes (Death)
  Sender: FDA-Public Use
  Company Number: None

PATIENT
  Age: 51 Year
  Sex: Female

DRUGS (6)
  1. TADALAFIL [Suspect]
     Active Substance: TADALAFIL
     Indication: Pulmonary arterial hypertension
     Dates: start: 20190102, end: 20220726
  2. AMBRISENTAN [Suspect]
     Active Substance: AMBRISENTAN
  3. TADALAFIL [Concomitant]
     Active Substance: TADALAFIL
  4. LASIX [Concomitant]
     Active Substance: FUROSEMIDE
  5. BUPROPION [Concomitant]
     Active Substance: BUPROPION
  6. LOSARTAN [Concomitant]
     Active Substance: LOSARTAN

REACTIONS (2)
  - SARS-CoV-2 test positive [None]
  - COVID-19 [None]

NARRATIVE: CASE EVENT DATE: 20220726
